FAERS Safety Report 21402823 (Version 1)
Quarter: 2022Q3

REPORT INFORMATION
  Report Type: Spontaneous
  Country: US (occurrence: None)
  Receive Date: 20220930
  Receipt Date: 20220930
  Transmission Date: 20221027
  Serious: No
  Sender: FDA-Public Use
  Company Number: None

PATIENT
  Age: 50 Year
  Sex: Female
  Weight: 117.9 kg

DRUGS (7)
  1. AVSOLA [Suspect]
     Active Substance: INFLIXIMAB-AXXQ
     Indication: Crohn^s disease
     Dates: start: 20220726, end: 20220908
  2. ENTOCORT [Concomitant]
     Active Substance: BUDESONIDE
  3. METHOTREXATE [Concomitant]
     Active Substance: METHOTREXATE
  4. PRILOSEC [Concomitant]
     Active Substance: OMEPRAZOLE MAGNESIUM
  5. FOLIC ACID [Concomitant]
     Active Substance: FOLIC ACID
  6. VITAMIN D [Concomitant]
     Active Substance: VITAMIN D NOS
  7. Alive  Multi Vitamin [Concomitant]

REACTIONS (5)
  - Peripheral swelling [None]
  - Peripheral swelling [None]
  - Arthralgia [None]
  - Infusion related reaction [None]
  - Gait disturbance [None]

NARRATIVE: CASE EVENT DATE: 20220726
